FAERS Safety Report 12374031 (Version 6)
Quarter: 2016Q4

REPORT INFORMATION
  Report Type: Spontaneous
  Country: JP (occurrence: JP)
  Receive Date: 20160517
  Receipt Date: 20161007
  Transmission Date: 20170207
  Serious: Yes (Other)
  Sender: FDA-Public Use
  Company Number: JP-009507513-1605JPN007147

PATIENT
  Age: 62 Year
  Sex: Male
  Weight: 57.5 kg

DRUGS (14)
  1. ESLAX INTRAVENOUS 50MG/5.0ML [Suspect]
     Active Substance: ROCURONIUM BROMIDE
     Indication: INDUCTION OF ANAESTHESIA
  2. PROPOFOL. [Concomitant]
     Active Substance: PROPOFOL
     Indication: SEDATION
     Dosage: TOTAL DAILY DOSE: 11 ML,  (DIVIDED DOSE FREQUENCY UNKNOWN)
     Route: 042
     Dates: start: 20160502, end: 20160502
  3. EPHEDRINE HYDROCHLORIDE [Concomitant]
     Active Substance: EPHEDRINE HYDROCHLORIDE
     Dosage: DAILY DOSAGE UNKNOWN
     Route: 065
     Dates: start: 20160502, end: 20160502
  4. SUPRANE [Concomitant]
     Active Substance: DESFLURANE
     Indication: MAINTENANCE OF ANAESTHESIA
     Dosage: 5%, DAILY DOSAGE UNKNOWN; FORMULATION: ^EXT^
     Route: 051
  5. ESLAX INTRAVENOUS 50MG/5.0ML [Suspect]
     Active Substance: ROCURONIUM BROMIDE
     Indication: NEUROMUSCULAR BLOCKING THERAPY
     Dosage: 50 MG, ONCE (STRENGTH: 50MG/5ML)
     Route: 042
     Dates: start: 20160502, end: 20160502
  6. ULTIVA [Concomitant]
     Active Substance: REMIFENTANIL HYDROCHLORIDE
     Indication: ANALGESIC THERAPY
     Dosage: TOTAL DAILY DOSE: 2 MG, DIVIDED DOSE FREQUENCY UNKNOWN
     Route: 042
     Dates: start: 20160502, end: 20160502
  7. ULTIVA [Concomitant]
     Active Substance: REMIFENTANIL HYDROCHLORIDE
     Indication: INDUCTION OF ANAESTHESIA
  8. CEFAZOLIN SODIUM. [Concomitant]
     Active Substance: CEFAZOLIN SODIUM
     Indication: INFECTION PROPHYLAXIS
     Dosage: 1 G, TID
     Route: 042
     Dates: start: 20160430, end: 20160504
  9. SIGMART [Concomitant]
     Active Substance: NICORANDIL
     Dosage: 1.5ML/H, DAILY DOSAGE UNKNOWN
     Route: 051
     Dates: start: 20160502, end: 20160502
  10. ANAPEINE [Concomitant]
     Active Substance: ROPIVACAINE HYDROCHLORIDE
     Dosage: 0.75%, DAILY DOSAGE UNKNOWN
     Route: 061
     Dates: start: 20160502, end: 20160502
  11. NEOSYNESIN [Concomitant]
     Active Substance: PHENYLEPHRINE HYDROCHLORIDE
     Dosage: DAILY DOSE UNKNOWN
     Route: 051
     Dates: start: 20160502, end: 20160502
  12. BRIDION [Suspect]
     Active Substance: SUGAMMADEX
     Indication: NEUROMUSCULAR BLOCKADE REVERSAL
     Dosage: 200 MG, ONCE
     Route: 042
     Dates: start: 20160502, end: 20160502
  13. PROPOFOL. [Concomitant]
     Active Substance: PROPOFOL
     Indication: INDUCTION OF ANAESTHESIA
  14. INOVAN (DOPAMINE HYDROCHLORIDE) [Concomitant]
     Active Substance: DOPAMINE HYDROCHLORIDE
     Dosage: 3ML/H, DAILY DOSAGE UNKNOWN
     Route: 051
     Dates: start: 20160502, end: 20160502

REACTIONS (8)
  - Kounis syndrome [Unknown]
  - Blood pressure increased [Recovered/Resolved]
  - Electrocardiogram ST segment elevation [Recovered/Resolved]
  - Nausea [Unknown]
  - Anaphylactic reaction [Recovered/Resolved]
  - Hyperhidrosis [Unknown]
  - Abdominal pain [Unknown]
  - Abdominal pain upper [Unknown]

NARRATIVE: CASE EVENT DATE: 20160502
